FAERS Safety Report 5963066-3 (Version None)
Quarter: 2008Q4

REPORT INFORMATION
  Report Type: 
  Country: None (occurrence: None)
  Receive Date: 20081124
  Receipt Date: 20081112
  Transmission Date: 20090506
  Serious: Yes (Other)
  Sender: FDA-Public Use
  Company Number: US-ROCHE-597159

PATIENT
  Sex: Female
  Weight: 89.4 kg

DRUGS (5)
  1. BONIVA [Suspect]
     Route: 065
  2. HYDROCHLOROTHIAZIDE [Concomitant]
     Dosage: AS NEEDED
  3. BUSPIRONE HCL [Concomitant]
     Dosage: AS NEEDED
  4. CRESTOR [Concomitant]
     Dosage: AT BEDTIME
  5. VITAMINE D [Concomitant]

REACTIONS (3)
  - BLOOD PRESSURE INCREASED [None]
  - RENAL IMPAIRMENT [None]
  - WEIGHT INCREASED [None]
